FAERS Safety Report 5848049-6 (Version None)
Quarter: 2008Q3

REPORT INFORMATION
  Report Type: 
  Country: None (occurrence: None)
  Receive Date: 20080814
  Receipt Date: 20080804
  Transmission Date: 20090109
  Serious: Yes (Other)
  Sender: FDA-Public Use
  Company Number: 100#08#2008-03923

PATIENT
  Age: 57 Year
  Sex: Male

DRUGS (4)
  1. METHOTREXATE [Suspect]
     Indication: SYSTEMIC LUPUS ERYTHEMATOSUS
     Dates: end: 20040701
  2. METHYLPREDNISOLONE [Suspect]
     Indication: SYSTEMIC LUPUS ERYTHEMATOSUS
     Dosage: 1 G, INTRAVENOUS (NOT OTHERWISE SPECIFIED)
     Route: 042
     Dates: end: 20041201
  3. PREDNISONE TAB [Suspect]
     Indication: SYSTEMIC LUPUS ERYTHEMATOSUS
     Dosage: 0.5 MG/KG, ORAL
     Route: 048
  4. HYDROXYCHLOROQUINE SULFATE [Concomitant]

REACTIONS (20)
  - ABDOMINAL PAIN UPPER [None]
  - ANAEMIA [None]
  - CHILLS [None]
  - CHOLESTASIS [None]
  - CYTOLYTIC HEPATITIS [None]
  - HEPATITIS ACUTE [None]
  - HEPATOMEGALY [None]
  - HERPES SIMPLEX [None]
  - LYMPHOPENIA [None]
  - NIGHT SWEATS [None]
  - NO THERAPEUTIC RESPONSE [None]
  - ORAL MUCOSA EROSION [None]
  - PENIS DISORDER [None]
  - PROTHROMBIN TIME PROLONGED [None]
  - PRURITUS [None]
  - PYREXIA [None]
  - RASH VESICULAR [None]
  - SERUM FERRITIN INCREASED [None]
  - SKIN NECROSIS [None]
  - THROMBOCYTOPENIA [None]
